FAERS Safety Report 8392279-9 (Version None)
Quarter: 2012Q2

REPORT INFORMATION
  Report Type: 
  Country: None (occurrence: None)
  Receive Date: 20120529
  Receipt Date: 20120521
  Transmission Date: 20120825
  Serious: Yes (Hospitalization)
  Sender: FDA-Public Use
  Company Number: CH-JNJFOC-20120516627

PATIENT
  Sex: Female

DRUGS (1)
  1. SIMPONI [Suspect]
     Indication: TEMPORAL ARTERITIS
     Route: 058

REACTIONS (2)
  - OFF LABEL USE [None]
  - ANAL ABSCESS [None]
